FAERS Safety Report 9547919 (Version 1)
Quarter: 2013Q3

REPORT INFORMATION
  Report Type: Spontaneous
  Country: US (occurrence: None)
  Receive Date: 20130719
  Receipt Date: 20130719
  Transmission Date: 20140515
  Serious: Yes (Hospitalization)
  Sender: FDA-Public Use
  Company Number: 2012BAX017739

PATIENT
  Age: 53 Year
  Sex: 0

DRUGS (1)
  1. CYCLPHOSPHAMIDE FOR INJECTION USP(CYCLOPHOSPHAMIDE MONOHYDRATE)(POWDER FOR SOLUTION FOR INJECTION) [Suspect]
     Indication: PLASMA CELL MYELOMA

REACTIONS (1)
  - Febrile neutropenia [None]
